FAERS Safety Report 11235432 (Version 3)
Quarter: 2015Q3

REPORT INFORMATION
  Report Type: Spontaneous
  Country: DE (occurrence: DE)
  Receive Date: 20150702
  Receipt Date: 20150910
  Transmission Date: 20151125
  Serious: Yes (Other)
  Sender: FDA-Public Use
  Company Number: DE-INCYTE CORPORATION-2015IN003007

PATIENT
  Age: 54 Year
  Sex: Female

DRUGS (2)
  1. JAKAFI [Suspect]
     Active Substance: RUXOLITINIB
     Indication: THROMBOCYTOPENIA
     Dosage: 5 MG (1-0-1)
     Route: 065
     Dates: start: 20150313
  2. JAKAFI [Suspect]
     Active Substance: RUXOLITINIB
     Indication: NEUTROPENIA
     Dosage: 15 MG, 1-0-1
     Route: 065
     Dates: start: 20150105, end: 20150130

REACTIONS (9)
  - White blood cell count decreased [Unknown]
  - Neutrophil count decreased [Recovering/Resolving]
  - Erythropoiesis abnormal [Unknown]
  - Granulocytes maturation arrest [Unknown]
  - Thrombocytopenia [Recovering/Resolving]
  - Fibrosis [Unknown]
  - Off label use [Unknown]
  - Iron deficiency [Unknown]
  - Haemoglobin decreased [Unknown]

NARRATIVE: CASE EVENT DATE: 201501
